FAERS Safety Report 23967361 (Version 1)
Quarter: 2024Q2

REPORT INFORMATION
  Report Type: Spontaneous
  Country: PT (occurrence: PT)
  Receive Date: 20240612
  Receipt Date: 20240612
  Transmission Date: 20240715
  Serious: Yes (Life-Threatening, Hospitalization, Other)
  Sender: FDA-Public Use
  Company Number: PT-GLANDPHARMA-PT-2024GLNLIT00338

PATIENT
  Age: 33 Year
  Sex: Female

DRUGS (2)
  1. AZITHROMYCIN [Suspect]
     Active Substance: AZITHROMYCIN
     Indication: Pneumonia
     Route: 042
  2. AMOXICILLIN\CLAVULANATE POTASSIUM [Suspect]
     Active Substance: AMOXICILLIN\CLAVULANATE POTASSIUM
     Indication: Pneumonia
     Route: 065

REACTIONS (4)
  - Long QT syndrome [Recovering/Resolving]
  - Ventricular fibrillation [Recovering/Resolving]
  - Torsade de pointes [Recovering/Resolving]
  - Product use in unapproved indication [Unknown]
